FAERS Safety Report 10469496 (Version 1)
Quarter: 2014Q3

REPORT INFORMATION
  Report Type: Spontaneous
  Country: CH (occurrence: CH)
  Receive Date: 20140923
  Receipt Date: 20140923
  Transmission Date: 20150326
  Serious: Yes (Death, Hospitalization)
  Sender: FDA-Public Use
  Company Number: CH-TEVA-510147ISR

PATIENT
  Age: 68 Year
  Sex: Female

DRUGS (1)
  1. SUMATRIPTAN [Suspect]
     Active Substance: SUMATRIPTAN
     Indication: MIGRAINE
     Route: 065

REACTIONS (3)
  - Cerebral vasoconstriction [Fatal]
  - Brain oedema [Fatal]
  - Ischaemic stroke [Fatal]
